FAERS Safety Report 5352203-X (Version None)
Quarter: 2007Q2

REPORT INFORMATION
  Report Type: 
  Country: None (occurrence: None)
  Receive Date: 20070521
  Receipt Date: 20070221
  Transmission Date: 20071010
  Serious: No
  Sender: FDA-Public Use
  Company Number: WAES 0702USA03861

PATIENT
  Age: 48 Year
  Sex: Male
  Weight: 119.296 kg

DRUGS (9)
  1. JANUVIA [Suspect]
     Indication: DIABETES MELLITUS NON-INSULIN-DEPENDENT
     Dosage: 100 MG/DAILY/PO
     Route: 048
  2. CRESTOR [Concomitant]
  3. FLOMAX (MORNIFLUMATE) [Concomitant]
  4. GLUCOPHAGE [Concomitant]
  5. HYZAAR [Concomitant]
  6. LANTUS [Concomitant]
  7. NOVOLOG [Concomitant]
  8. REQUIP [Concomitant]
  9. VYTORIN [Concomitant]

REACTIONS (3)
  - DERMATITIS [None]
  - DYSPHAGIA [None]
  - URTICARIA [None]
